FAERS Safety Report 18627890 (Version 1)
Quarter: 2020Q4

REPORT INFORMATION
  Report Type: Spontaneous
  Country: US (occurrence: US)
  Receive Date: 20201217
  Receipt Date: 20201217
  Transmission Date: 20210114
  Serious: Yes (Hospitalization)
  Sender: FDA-Public Use
  Company Number: None

PATIENT
  Age: 69 Year
  Sex: Female
  Weight: 80.3 kg

DRUGS (8)
  1. FENTANYL TRANSDERMAL SYSTEM [Concomitant]
     Active Substance: FENTANYL
  2. BAMLANIVIMAB. [Suspect]
     Active Substance: BAMLANIVIMAB
     Indication: COVID-19
     Dosage: ?          OTHER FREQUENCY:ONCE;?
     Route: 042
     Dates: start: 20201210, end: 20201210
  3. METOPROLOL. [Concomitant]
     Active Substance: METOPROLOL
  4. SULCRALFATE [Concomitant]
     Active Substance: SUCRALFATE
  5. HYDROCODONE-ACETAMINOPHEN [Concomitant]
     Active Substance: ACETAMINOPHEN\HYDROCODONE
  6. PRAMIPEXOLE. [Concomitant]
     Active Substance: PRAMIPEXOLE
  7. OMEPRAZOLE. [Concomitant]
     Active Substance: OMEPRAZOLE
  8. ANASTRAZOLE [Concomitant]
     Active Substance: ANASTROZOLE

REACTIONS (4)
  - Chills [None]
  - Injection site swelling [None]
  - Injection site pain [None]
  - Headache [None]

NARRATIVE: CASE EVENT DATE: 20201210
